FAERS Safety Report 4304747-7 (Version None)
Quarter: 2004Q1

REPORT INFORMATION
  Report Type: 
  Country: None (occurrence: None)
  Receive Date: 20040226
  Receipt Date: 20031201
  Transmission Date: 20041129
  Serious: No
  Sender: FDA-Public Use
  Company Number: US-GLAXOSMITHKLINE-A0441468A

PATIENT
  Age: 51 Year
  Sex: Female

DRUGS (2)
  1. WELLBUTRIN [Suspect]
     Indication: LIBIDO DECREASED
     Dosage: 150MG PER DAY
     Route: 048
     Dates: start: 20031031
  2. LEXAPRO [Concomitant]

REACTIONS (1)
  - MYALGIA [None]
